FAERS Safety Report 7715249-X (Version None)
Quarter: 2011Q3

REPORT INFORMATION
  Report Type: 
  Country: None (occurrence: None)
  Receive Date: 20110829
  Receipt Date: 20110823
  Transmission Date: 20111222
  Serious: Yes (Hospitalization)
  Sender: FDA-Public Use
  Company Number: DE-PFIZER INC-2011163281

PATIENT
  Age: 86 Year
  Sex: Female
  Weight: 47 kg

DRUGS (4)
  1. METOPROLOL SUCCINATE [Concomitant]
     Dosage: 95 MG IN THE MORNING, 47.5 MG IN THE EVENING
  2. SUNITINIB MALATE [Suspect]
     Indication: METASTATIC RENAL CELL CARCINOMA
     Dosage: 50 MG, 1X/DAY
     Route: 048
     Dates: start: 20110610, end: 20110714
  3. ENALAPRIL MALEATE [Concomitant]
     Dosage: 5 MG IN THE MORNING, 2.5 MG IN THE EVENING
  4. MOVIPREP [Concomitant]
     Dosage: 1 DF, 2X/DAY

REACTIONS (5)
  - ALKALOSIS HYPOCHLORAEMIC [None]
  - GENERAL PHYSICAL HEALTH DETERIORATION [None]
  - THROMBOCYTOPENIA [None]
  - FATIGUE [None]
  - HYPONATRAEMIA [None]
